FAERS Safety Report 13413039 (Version 1)
Quarter: 2017Q2

REPORT INFORMATION
  Report Type: Spontaneous
  Country: SI (occurrence: SI)
  Receive Date: 20170407
  Receipt Date: 20170407
  Transmission Date: 20170830
  Serious: Yes (Hospitalization)
  Sender: FDA-Public Use
  Company Number: SI-SA-2017SA057932

PATIENT
  Age: 55 Year
  Sex: Male

DRUGS (4)
  1. FABRAZYME [Suspect]
     Active Substance: AGALSIDASE BETA
     Indication: FABRY^S DISEASE
     Route: 041
     Dates: start: 20091005
  2. RIVAROXABAN [Concomitant]
     Active Substance: RIVAROXABAN
     Dates: start: 201412
  3. SOTALOL. [Concomitant]
     Active Substance: SOTALOL
     Dates: start: 201503
  4. RAMIPRIL. [Concomitant]
     Active Substance: RAMIPRIL
     Dates: start: 20150128

REACTIONS (1)
  - Atrial fibrillation [Recovered/Resolved]

NARRATIVE: CASE EVENT DATE: 20170226
